FAERS Safety Report 10562268 (Version 2)
Quarter: 2015Q1

REPORT INFORMATION
  Report Type: Spontaneous
  Country: US (occurrence: None)
  Receive Date: 20141031
  Receipt Date: 20150122
  Transmission Date: 20150720
  Serious: Yes (Hospitalization, Other)
  Sender: FDA-Public Use
  Company Number: 2014SGN01276

PATIENT
  Age: 71 Year
  Sex: Female
  Weight: 64 kg

DRUGS (16)
  1. VINCRISTINE (VINCRISTINE) INJECTION [Suspect]
     Active Substance: VINCRISTINE
     Indication: DIFFUSE LARGE B-CELL LYMPHOMA
     Route: 042
     Dates: start: 20140702, end: 20140924
  2. ASPIRIN (ACETYLSALICYLIC ACID) [Concomitant]
     Active Substance: ASPIRIN
  3. NEULASTA [Concomitant]
     Active Substance: PEGFILGRASTIM
  4. RITUXIMAB (RITUXIMAB) INJECTION [Suspect]
     Active Substance: RITUXIMAB
     Indication: DIFFUSE LARGE B-CELL LYMPHOMA
     Route: 042
     Dates: start: 20140703, end: 20140924
  5. POTASSIUM CHLORIDE. [Concomitant]
     Active Substance: POTASSIUM CHLORIDE
  6. CIPRO (CIPROFLOXACIN HYDROCHLORIDE) [Concomitant]
  7. PANTOPRAZOLE SODIUM [Concomitant]
     Active Substance: PANTOPRAZOLE SODIUM
  8. PROCHLORPERAZINE MALEATE. [Concomitant]
     Active Substance: PROCHLORPERAZINE MALEATE
  9. CYCLOPHOSPHAMIDE (CYCLOPHOSPHAMIDE) INJECTION [Suspect]
     Active Substance: CYCLOPHOSPHAMIDE
     Indication: DIFFUSE LARGE B-CELL LYMPHOMA
     Route: 042
     Dates: start: 20140702, end: 20140924
  10. PREDNISONE (PREDNISONE) ORAL [Suspect]
     Active Substance: PREDNISONE
     Indication: DIFFUSE LARGE B-CELL LYMPHOMA
     Dosage: 100 MG, QCYCLE, ORAL
     Route: 048
     Dates: start: 20140702, end: 20140924
  11. MARINOL [Concomitant]
     Active Substance: DRONABINOL
  12. ZOFRAN (ONDANSETRON HYDROCHLORIDE) [Concomitant]
  13. BRENTUXIMAB VEDOTIN (BRENTUXIMAB VEDOTIN) INJECTION [Suspect]
     Active Substance: BRENTUXIMAB VEDOTIN
     Indication: DIFFUSE LARGE B-CELL LYMPHOMA
     Route: 042
     Dates: start: 20140702, end: 20140924
  14. DOXORUBICIN (DOXORUBICIN) INJECTION [Suspect]
     Active Substance: DOXORUBICIN
     Indication: DIFFUSE LARGE B-CELL LYMPHOMA
     Route: 042
     Dates: start: 20140702, end: 20140924
  15. ALLOPURINOL. [Concomitant]
     Active Substance: ALLOPURINOL
  16. MEGACE [Concomitant]
     Active Substance: MEGESTROL ACETATE

REACTIONS (4)
  - Clostridium difficile infection [None]
  - Febrile neutropenia [None]
  - White blood cell count decreased [None]
  - Haematocrit decreased [None]

NARRATIVE: CASE EVENT DATE: 20141001
